FAERS Safety Report 9665607 (Version 1)
Quarter: 2013Q4

REPORT INFORMATION
  Report Type: Spontaneous
  Country: US (occurrence: None)
  Receive Date: 20131031
  Receipt Date: 20131031
  Transmission Date: 20140711
  Serious: No
  Sender: FDA-Public Use
  Company Number: None

PATIENT
  Sex: Female

DRUGS (1)
  1. HUMIRA 40MG ABB VIE [Suspect]
     Indication: COLITIS ULCERATIVE
     Dosage: EVERY OTHER WEEK
     Route: 058
     Dates: start: 20121030

REACTIONS (2)
  - Orthostatic heart rate response increased [None]
  - Weight increased [None]
